FAERS Safety Report 7445112-3 (Version None)
Quarter: 2011Q2

REPORT INFORMATION
  Report Type: 
  Country: None (occurrence: None)
  Receive Date: 20110429
  Receipt Date: 20110418
  Transmission Date: 20111010
  Serious: Yes (Life-Threatening, Hospitalization)
  Sender: FDA-Public Use
  Company Number: US-JNJFOC-20100500709

PATIENT
  Sex: Male
  Weight: 121.11 kg

DRUGS (22)
  1. TAPENTADOL [Suspect]
     Dosage: 2/DAY
     Route: 048
  2. GLIPIZIDE [Concomitant]
     Indication: DIABETES MELLITUS
     Route: 048
  3. NIACIN [Concomitant]
     Indication: HYPERCHOLESTEROLAEMIA
     Route: 048
  4. ASPIRIN [Concomitant]
     Indication: PROPHYLAXIS
     Route: 048
  5. TAPENTADOL [Suspect]
     Route: 048
  6. TAPENTADOL [Suspect]
     Indication: DIABETIC NEUROPATHY
     Route: 048
  7. PLACEBO [Suspect]
     Indication: DIABETIC NEUROPATHY
     Route: 048
  8. TAPENTADOL [Suspect]
     Dosage: 2/DAY
     Route: 048
  9. ZOCOR [Concomitant]
     Indication: HYPERCHOLESTEROLAEMIA
     Route: 048
  10. LISINOPRIL [Concomitant]
     Indication: HYPERTENSION
     Route: 048
  11. ACETAMINOPHEN [Concomitant]
     Indication: DIABETIC NEUROPATHY
     Route: 048
  12. MUCINEX [Concomitant]
     Indication: MULTIPLE ALLERGIES
     Route: 048
  13. TAPENTADOL [Suspect]
     Dosage: 2/DAY
     Route: 048
  14. MUCINEX [Concomitant]
     Route: 048
  15. OMEPRAZOLE [Concomitant]
     Indication: GASTROOESOPHAGEAL REFLUX DISEASE
     Route: 048
  16. BENADRYL [Concomitant]
     Indication: MULTIPLE ALLERGIES
     Route: 048
  17. DOXYCYCLINE [Concomitant]
     Indication: MULTIPLE ALLERGIES
     Route: 048
  18. TAPENTADOL [Suspect]
     Dosage: 2/DAY
     Route: 048
  19. PLAVIX [Concomitant]
     Indication: CARDIAC VALVE DISEASE
     Route: 048
  20. METFORMIN [Concomitant]
     Indication: TYPE 2 DIABETES MELLITUS
     Route: 048
  21. ACTOS [Concomitant]
     Indication: DIABETES MELLITUS
     Route: 048
  22. TAPENTADOL [Suspect]
     Dosage: 2/DAY
     Route: 048

REACTIONS (6)
  - CHEST PAIN [None]
  - ELECTROCARDIOGRAM CHANGE [None]
  - HYPERHIDROSIS [None]
  - DIZZINESS [None]
  - DYSPNOEA [None]
  - VISION BLURRED [None]
